FAERS Safety Report 10008230 (Version 1)
Quarter: 2014Q1

REPORT INFORMATION
  Report Type: Spontaneous
  Country: US (occurrence: US)
  Receive Date: 20140313
  Receipt Date: 20140313
  Transmission Date: 20141002
  Serious: No
  Sender: FDA-Public Use
  Company Number: US-GILEAD-2013-0073500

PATIENT
  Sex: Female

DRUGS (4)
  1. LETAIRIS [Suspect]
     Indication: PRODUCT USED FOR UNKNOWN INDICATION
     Dosage: 10 MG, QD
     Route: 048
     Dates: start: 20121017
  2. ADCIRCA [Concomitant]
  3. COUMADIN                           /00014802/ [Concomitant]
  4. TRACLEER                           /01587701/ [Concomitant]

REACTIONS (4)
  - Malaise [Unknown]
  - Arthralgia [Unknown]
  - Pain [Unknown]
  - Nasal congestion [Unknown]
